FAERS Safety Report 7040447-0 (Version None)
Quarter: 2010Q4

REPORT INFORMATION
  Report Type: 
  Country: None (occurrence: None)
  Receive Date: 20101008
  Receipt Date: 20101008
  Transmission Date: 20110411
  Serious: Yes (Other)
  Sender: FDA-Public Use
  Company Number: None

PATIENT
  Age: 74 Year
  Sex: Female
  Weight: 56.6996 kg

DRUGS (1)
  1. NITROFURANTOIN [Suspect]
     Indication: CYSTITIS
     Dosage: 100 MG TWICE A DAY BY MOUTH
     Route: 048
     Dates: start: 20100805, end: 20100812

REACTIONS (11)
  - ARTHRALGIA [None]
  - DRY MOUTH [None]
  - HEADACHE [None]
  - INFLUENZA LIKE ILLNESS [None]
  - MALAISE [None]
  - MUSCULOSKELETAL PAIN [None]
  - MYALGIA [None]
  - NECK PAIN [None]
  - OCULAR HYPERAEMIA [None]
  - RASH [None]
  - VISION BLURRED [None]
